FAERS Safety Report 4637029-4 (Version None)
Quarter: 2005Q2

REPORT INFORMATION
  Report Type: 
  Country: None (occurrence: None)
  Receive Date: 20050328
  Receipt Date: 20041130
  Transmission Date: 20051028
  Serious: No
  Sender: FDA-Public Use
  Company Number: USA041285146

PATIENT
  Age: 62 Year
  Sex: Male

DRUGS (6)
  1. STRATTERA [Suspect]
     Dosage: 60 MG/3 DAY
     Dates: start: 20040101, end: 20041001
  2. NADOLOL [Concomitant]
  3. LISOPRIL (LISINOPRIL) [Concomitant]
  4. PROTONIX [Concomitant]
  5. AGGRENOX [Concomitant]
  6. LEXAPRO [Concomitant]

REACTIONS (4)
  - ASTHENIA [None]
  - DIZZINESS [None]
  - HYPERHIDROSIS [None]
  - PRESCRIBED OVERDOSE [None]
